FAERS Safety Report 24737648 (Version 2)
Quarter: 2024Q4

REPORT INFORMATION
  Report Type: Report from Study
  Country: MX (occurrence: MX)
  Receive Date: 20241216
  Receipt Date: 20241223
  Transmission Date: 20250115
  Serious: Yes (Hospitalization)
  Sender: BIOVITRUM
  Company Number: MX-AstraZeneca-CH-00763568A

PATIENT
  Age: 11 Week
  Sex: Male
  Weight: 2.64 kg

DRUGS (6)
  1. PALIVIZUMAB [Suspect]
     Active Substance: PALIVIZUMAB
     Indication: Antiviral prophylaxis
     Dosage: 1ST DOSE (MONTHLY)
     Route: 030
     Dates: start: 20241205
  2. POLY VI SOL [Concomitant]
     Indication: Product used for unknown indication
     Dosage: 1 MILLILITER, QD
     Dates: start: 20241116
  3. POLY VI SOL [Concomitant]
     Dosage: 0.5 MILLILITER
     Dates: start: 20241212
  4. HYDROCHLOROTHIAZIDE [Concomitant]
     Active Substance: HYDROCHLOROTHIAZIDE
     Indication: Product used for unknown indication
     Dosage: 6 MILLIGRAM, QD
     Dates: start: 20241116
  5. SPIRONOLACTONE [Concomitant]
     Active Substance: SPIRONOLACTONE
     Indication: Product used for unknown indication
     Dosage: 6 MILLIGRAM, QD
     Dates: start: 20241116
  6. FLUTICASONE [Concomitant]
     Active Substance: FLUTICASONE
     Indication: Inflammation
     Dosage: 2 DOSAGE FORM, Q12H
     Dates: start: 20241116

REACTIONS (3)
  - Crying [Recovered/Resolved]
  - Pain in extremity [Recovered/Resolved]
  - Irritability [Recovered/Resolved]

NARRATIVE: CASE EVENT DATE: 20241205
